FAERS Safety Report 5203676-4 (Version None)
Quarter: 2007Q1

REPORT INFORMATION
  Report Type: 
  Country: None (occurrence: None)
  Receive Date: 20070110
  Receipt Date: 20070105
  Transmission Date: 20070707
  Serious: Yes (Other)
  Sender: FDA-Public Use
  Company Number: 2007UW00325

PATIENT
  Age: 72 Year
  Sex: Female

DRUGS (8)
  1. NEXIUM [Suspect]
     Indication: HIATUS HERNIA
     Route: 048
     Dates: end: 20070101
  2. NEXIUM [Suspect]
     Indication: GASTROOESOPHAGEAL REFLUX DISEASE
     Route: 048
     Dates: end: 20070101
  3. CARDIZEM [Concomitant]
  4. VYTORIN [Concomitant]
  5. TRICOR [Concomitant]
  6. TENORMIN [Concomitant]
  7. MOBIC [Concomitant]
  8. PLAVIX [Concomitant]

REACTIONS (1)
  - OSTEONECROSIS [None]
